FAERS Safety Report 13001457 (Version 1)
Quarter: 2016Q4

REPORT INFORMATION
  Report Type: Spontaneous
  Country: US (occurrence: US)
  Receive Date: 20161203
  Receipt Date: 20161203
  Transmission Date: 20170207
  Serious: Yes (Hospitalization)
  Sender: FDA-Public Use
  Company Number: None

PATIENT
  Age: 83 Year
  Sex: Female
  Weight: 55 kg

DRUGS (5)
  1. ASPIRIN. [Concomitant]
     Active Substance: ASPIRIN
  2. CITALOPRAM HDR [Concomitant]
  3. MEMANTINE HYDROCHLORIDE. [Suspect]
     Active Substance: MEMANTINE HYDROCHLORIDE
     Dates: end: 20161114
  4. IBUPROFEN. [Concomitant]
     Active Substance: IBUPROFEN
  5. FERROUS SULFATE. [Concomitant]
     Active Substance: FERROUS SULFATE

REACTIONS (9)
  - Disorientation [None]
  - Back pain [None]
  - Mental status changes [None]
  - Hallucinations, mixed [None]
  - Agitation [None]
  - Bedridden [None]
  - Fall [None]
  - Confusional state [None]
  - Lethargy [None]

NARRATIVE: CASE EVENT DATE: 20161112
